FAERS Safety Report 5909504-3 (Version None)
Quarter: 2008Q4

REPORT INFORMATION
  Report Type: 
  Country: None (occurrence: None)
  Receive Date: 20081002
  Receipt Date: 20080923
  Transmission Date: 20090506
  Serious: Yes (Life-Threatening, Hospitalization, Disabling)
  Sender: FDA-Public Use
  Company Number: 2008AP002532

PATIENT
  Age: 31 Year
  Sex: Female

DRUGS (2)
  1. CITALOPRAM HYDROBROMIDE [Suspect]
     Indication: DEPRESSION
     Dosage: 20 MG; PO; 40 MG; PO
     Route: 048
     Dates: end: 20080826
  2. DIANETTE (DIANE) [Suspect]
     Dosage: 1 DF; PO;QD
     Route: 048
     Dates: end: 20080826

REACTIONS (1)
  - HAEMORRHAGE INTRACRANIAL [None]
